FAERS Safety Report 19496913 (Version 1)
Quarter: 2021Q3

REPORT INFORMATION
  Report Type: Spontaneous
  Country: US (occurrence: US)
  Receive Date: 20210701
  Receipt Date: 20210701
  Transmission Date: 20211014
  Serious: Yes (Other)
  Sender: FDA-Public Use
  Company Number: None

PATIENT
  Sex: Female
  Weight: 3.4 kg

DRUGS (3)
  1. SEROQUEL [Suspect]
     Active Substance: QUETIAPINE FUMARATE
  2. XANAX [Suspect]
     Active Substance: ALPRAZOLAM
  3. ATENOLOL. [Suspect]
     Active Substance: ATENOLOL

REACTIONS (1)
  - Nail-patella syndrome [None]
